FAERS Safety Report 8679130 (Version 2)
Quarter: 2013Q4

REPORT INFORMATION
  Report Type: Spontaneous
  Country: US (occurrence: US)
  Receive Date: 20120724
  Receipt Date: 20131107
  Transmission Date: 20140711
  Serious: Yes (Other)
  Sender: FDA-Public Use
  Company Number: US-009507513-1207USA007061

PATIENT
  Age: 72 Year
  Sex: Female

DRUGS (4)
  1. PEGINTRON [Suspect]
     Indication: HEPATITIS C
     Dosage: UNK, QW
     Dates: start: 201201
  2. PEGINTRON [Suspect]
     Dosage: UNK, QW
     Dates: start: 201202
  3. REBETOL [Concomitant]
  4. PROCRIT [Concomitant]
     Indication: BLOOD IRON DECREASED

REACTIONS (1)
  - Acute respiratory distress syndrome [Unknown]
